FAERS Safety Report 24555463 (Version 1)
Quarter: 2024Q4

REPORT INFORMATION
  Report Type: Spontaneous
  Country: US (occurrence: US)
  Receive Date: 20241028
  Receipt Date: 20241028
  Transmission Date: 20250114
  Serious: No
  Sender: BAYER HEALTHCARE LLC
  Company Number: US-BAYER-2024A149695

PATIENT
  Age: 12 Year
  Sex: Female
  Weight: 40 kg

DRUGS (3)
  1. LORATADINE [Suspect]
     Active Substance: LORATADINE
     Dosage: UNK
     Route: 048
  2. DIPHENHYDRAMINE [Concomitant]
     Active Substance: DIPHENHYDRAMINE
  3. CETIRIZINE [Concomitant]
     Active Substance: CETIRIZINE HYDROCHLORIDE

REACTIONS (1)
  - Drug ineffective [None]
